FAERS Safety Report 25744189 (Version 1)
Quarter: 2025Q3

REPORT INFORMATION
  Report Type: Spontaneous
  Country: CN (occurrence: CN)
  Receive Date: 20250901
  Receipt Date: 20250901
  Transmission Date: 20251020
  Serious: Yes (Hospitalization)
  Sender: BAXTER
  Company Number: None

PATIENT
  Age: 70 Year
  Sex: Male
  Weight: 50 kg

DRUGS (1)
  1. CLINOMEL [Suspect]
     Active Substance: AMINO ACIDS\DEXTROSE\ELECTROLYTES NOS\SOYBEAN OIL
     Indication: Nutritional supplementation
     Dosage: 1000 ML, QD, IVGTT
     Route: 041
     Dates: start: 20250822, end: 20250822

REACTIONS (2)
  - Temperature intolerance [Recovering/Resolving]
  - Pyrexia [Recovering/Resolving]

NARRATIVE: CASE EVENT DATE: 20250822
